FAERS Safety Report 8239060-9 (Version None)
Quarter: 2012Q1

REPORT INFORMATION
  Report Type: 
  Country: None (occurrence: None)
  Receive Date: 20120327
  Receipt Date: 20120323
  Transmission Date: 20120608
  Serious: Yes (Hospitalization, Other)
  Sender: FDA-Public Use
  Company Number: US-MERCK-1109USA01357

PATIENT
  Age: 76 Year
  Sex: Female

DRUGS (7)
  1. FOSAMAX [Suspect]
     Indication: OSTEOPENIA
     Route: 048
     Dates: start: 19960101, end: 20090901
  2. SYNTHROID [Concomitant]
     Route: 048
  3. FOSAMAX [Suspect]
     Indication: OSTEOPOROSIS
     Route: 048
     Dates: start: 19960101, end: 20090901
  4. FOSAMAX [Suspect]
     Route: 048
     Dates: start: 19960101, end: 20090901
  5. FOSAMAX [Suspect]
     Route: 048
     Dates: start: 20080201
  6. FOSAMAX [Suspect]
     Route: 048
     Dates: start: 20080201
  7. FOSAMAX [Suspect]
     Route: 048
     Dates: start: 19960101, end: 20090901

REACTIONS (23)
  - NEUROMA [None]
  - HYPERCHOLESTEROLAEMIA [None]
  - UPPER RESPIRATORY TRACT INFECTION [None]
  - HYPERTENSION [None]
  - FEMUR FRACTURE [None]
  - HYPERLIPIDAEMIA [None]
  - STRESS [None]
  - DIZZINESS [None]
  - HYPOTHYROIDISM [None]
  - OSTEOARTHRITIS [None]
  - HYPERTONIC BLADDER [None]
  - OSTEOPENIA [None]
  - LOW TURNOVER OSTEOPATHY [None]
  - DRUG INEFFECTIVE [None]
  - ATELECTASIS [None]
  - BREAST CYST [None]
  - TACHYCARDIA [None]
  - SINUS TACHYCARDIA [None]
  - RADICULOPATHY [None]
  - URINARY TRACT INFECTION [None]
  - AORTIC ARTERIOSCLEROSIS [None]
  - NEUROPATHY PERIPHERAL [None]
  - CORONARY ARTERY DISEASE [None]
